FAERS Safety Report 9524017 (Version 1)
Quarter: 2013Q3

REPORT INFORMATION
  Report Type: Spontaneous
  Country: US (occurrence: None)
  Receive Date: 20130912
  Receipt Date: 20130912
  Transmission Date: 20140515
  Serious: Yes (Hospitalization)
  Sender: FDA-Public Use
  Company Number: None

PATIENT
  Age: 88 Year
  Sex: Male
  Weight: 66 kg

DRUGS (9)
  1. RIVAROXABAN 15 MG JANSSEN [Suspect]
     Indication: ATRIAL FIBRILLATION
     Dosage: 15 MG QD ORAL?DATES OF USE:  UNKNOWN-PRIOR TO ADMISSION
     Route: 048
  2. COLECALCIFEROL [Concomitant]
  3. DIGOXIN [Concomitant]
  4. GLIPMEPIRIDE [Concomitant]
  5. LOSARTAN/HCTZ 100/25 [Concomitant]
  6. METOPROLOL [Concomitant]
  7. MULTIVITAMIN [Concomitant]
  8. SIMVASTATIN [Concomitant]
  9. SITAGLIPTIN/METFORMIN [Concomitant]

REACTIONS (1)
  - Haematuria [None]
